FAERS Safety Report 10052927 (Version 1)
Quarter: 2014Q1

REPORT INFORMATION
  Report Type: Spontaneous
  Country: GR (occurrence: None)
  Receive Date: 20140331
  Receipt Date: 20140331
  Transmission Date: 20141002
  Serious: Yes (Death, Hospitalization)
  Sender: FDA-Public Use
  Company Number: 2014P1002524

PATIENT
  Age: 17 Year
  Sex: Female

DRUGS (1)
  1. HYDROCORTISONE [Suspect]
     Indication: BRAIN OEDEMA

REACTIONS (5)
  - Thrombocytopenia [None]
  - Acute respiratory distress syndrome [None]
  - Necrosis [None]
  - Stem cell transplant [None]
  - Craniopharyngioma [None]
